FAERS Safety Report 18454316 (Version 1)
Quarter: 2020Q4

REPORT INFORMATION
  Report Type: Spontaneous
  Country: JP (occurrence: JP)
  Receive Date: 20201102
  Receipt Date: 20201102
  Transmission Date: 20210114
  Serious: Yes (Life-Threatening, Hospitalization, Other)
  Sender: FDA-Public Use
  Company Number: JP-TEVA-2020-JP-1843741

PATIENT
  Age: 59 Year
  Sex: Male

DRUGS (5)
  1. PEMBROLIZUMAB. [Suspect]
     Active Substance: PEMBROLIZUMAB
     Indication: NON-SMALL CELL LUNG CANCER RECURRENT
     Dosage: THIRD-LINE TREATMENT
     Route: 065
  2. METHYLPREDNISOLONE. [Suspect]
     Active Substance: METHYLPREDNISOLONE
     Indication: PNEUMONITIS
     Dosage: 1000 MILLIGRAM DAILY; AS PULSE THERAPY; WAS ADMINISTERED AGAIN AS A PART OF TRIPLE COMBINATION THERA
     Route: 065
  3. PREDNISOLONE. [Suspect]
     Active Substance: PREDNISOLONE
     Dosage: 25 MILLIGRAM DAILY;
     Route: 065
  4. PREDNISOLONE. [Suspect]
     Active Substance: PREDNISOLONE
     Indication: PNEUMONITIS
     Dosage: 80 MILLIGRAM DAILY; MAINTENANCE THERAPY
     Route: 065
  5. BLEOMYCIN [Suspect]
     Active Substance: BLEOMYCIN SULFATE
     Indication: PERICARDITIS MALIGNANT
     Dosage: INTRAPERICARDIAL INSTILLATION OF BLEOMYCIN FOLLOWING PERICARDIAL DRAINAGE WAS PERFORMED
     Route: 032

REACTIONS (7)
  - Drug ineffective [Unknown]
  - Pneumonitis [Recovering/Resolving]
  - Respiratory failure [Recovering/Resolving]
  - Bronchiectasis [Recovering/Resolving]
  - Diffuse alveolar damage [Recovering/Resolving]
  - Therapy non-responder [Unknown]
  - Dyspnoea [Unknown]
